FAERS Safety Report 10369711 (Version 1)
Quarter: 2014Q3

REPORT INFORMATION
  Report Type: Spontaneous
  Country: US (occurrence: US)
  Receive Date: 20140807
  Receipt Date: 20140807
  Transmission Date: 20150326
  Serious: No
  Sender: FDA-Public Use
  Company Number: US-AMGEN-USASP2014047776

PATIENT
  Age: 65 Year
  Sex: Female

DRUGS (1)
  1. NPLATE [Suspect]
     Active Substance: ROMIPLOSTIM
     Indication: PRODUCT USED FOR UNKNOWN INDICATION
     Dosage: 250 MUG, UNK, INJECT 250 MCG (0.5 ML) WEEKLY
     Route: 058
     Dates: start: 20140525

REACTIONS (4)
  - Pain in extremity [Unknown]
  - Musculoskeletal pain [Unknown]
  - Arthritis [Unknown]
  - Back pain [Unknown]
